FAERS Safety Report 4591263-0 (Version None)
Quarter: 2005Q1

REPORT INFORMATION
  Report Type: 
  Country: None (occurrence: None)
  Receive Date: 20050225
  Receipt Date: 20050216
  Transmission Date: 20050727
  Serious: Yes (Death)
  Sender: FDA-Public Use
  Company Number: JP-MERCK-0502USA02584

PATIENT
  Age: 81 Year
  Sex: Female

DRUGS (3)
  1. PRIMAXIN [Suspect]
     Indication: INFECTION PROPHYLAXIS
     Route: 041
  2. BANAN [Concomitant]
     Indication: INFECTION PROPHYLAXIS
     Route: 048
  3. CEFCAPENE PIVOXIL HYDROCHLORIDE [Concomitant]
     Indication: INFECTION PROPHYLAXIS
     Route: 048

REACTIONS (2)
  - CLOSTRIDIUM COLITIS [None]
  - PNEUMONIA ASPIRATION [None]
